FAERS Safety Report 18460366 (Version 5)
Quarter: 2021Q1

REPORT INFORMATION
  Report Type: Report from Study
  Country: US (occurrence: US)
  Receive Date: 20201103
  Receipt Date: 20210114
  Transmission Date: 20210419
  Serious: No
  Sender: FDA-Public Use
  Company Number: NVSC2020US294225

PATIENT
  Age: 47 Year
  Sex: Female

DRUGS (2)
  1. COSENTYX [Suspect]
     Active Substance: SECUKINUMAB
     Indication: PSORIATIC ARTHROPATHY
     Dosage: 300 MG, OTHER (300 MG FOR FIVE WEEKS AND THEN 300 MG EVERY FOUR WEEKS)
     Route: 058
     Dates: start: 20200624
  2. COSENTYX [Suspect]
     Active Substance: SECUKINUMAB
     Dosage: 300 MG ((300 MG FOR FIVE WEEKS AND THEN 300 MG EVERY FOUR WEEKS))
     Route: 058
     Dates: start: 20200713, end: 20201225

REACTIONS (4)
  - Pain [Unknown]
  - Psoriasis [Unknown]
  - Injection site pain [Unknown]
  - Drug ineffective [Unknown]

NARRATIVE: CASE EVENT DATE: 20200713
